FAERS Safety Report 9110176 (Version 2)
Quarter: 2013Q1

REPORT INFORMATION
  Report Type: Report from Study
  Country: US (occurrence: US)
  Receive Date: 20130222
  Receipt Date: 20130306
  Transmission Date: 20140127
  Serious: Yes (Other)
  Sender: FDA-Public Use
  Company Number: US-ASTELLAS-2013US001860

PATIENT
  Sex: Female

DRUGS (4)
  1. ERLOTINIB TABLET [Suspect]
     Indication: LUNG NEOPLASM MALIGNANT
     Dosage: 150 MG, UID/QD
     Route: 048
  2. ERLOTINIB TABLET [Suspect]
     Dosage: 150 MG, QOD
     Route: 048
  3. ERLOTINIB TABLET [Suspect]
     Dosage: 150 MG, UID/QD
     Route: 048
  4. ERLOTINIB TABLET [Suspect]
     Dosage: 150 MG, QOD
     Route: 048

REACTIONS (4)
  - Blood pressure fluctuation [Unknown]
  - Confusional state [Unknown]
  - Rash [Unknown]
  - Eye irritation [Not Recovered/Not Resolved]
